FAERS Safety Report 6915828-3 (Version None)
Quarter: 2010Q3

REPORT INFORMATION
  Report Type: 
  Country: None (occurrence: None)
  Receive Date: 20100810
  Receipt Date: 20100520
  Transmission Date: 20110219
  Serious: No
  Sender: FDA-Public Use
  Company Number: A0860612A

PATIENT
  Age: 93 Year
  Sex: Female

DRUGS (6)
  1. PAXIL [Suspect]
     Indication: DEPRESSION
     Dosage: 30MG PER DAY
     Route: 048
     Dates: start: 20100517
  2. ASPIRIN [Concomitant]
  3. BLOOD PRESSURE MEDICATION [Concomitant]
  4. HEART MEDICATION [Concomitant]
  5. VITAMIN D [Concomitant]
  6. EYE DROPS [Concomitant]

REACTIONS (2)
  - ASTHENIA [None]
  - LETHARGY [None]
